FAERS Safety Report 9452416 (Version 2)
Quarter: 2013Q4

REPORT INFORMATION
  Report Type: Spontaneous
  Country: US (occurrence: US)
  Receive Date: 20130812
  Receipt Date: 20131226
  Transmission Date: 20140711
  Serious: Yes (Other)
  Sender: FDA-Public Use
  Company Number: US-BAYER-2013-095259

PATIENT
  Age: 40 Year
  Sex: Female

DRUGS (4)
  1. YAZ [Suspect]
  2. LEVOTHYROXINE [Concomitant]
     Dosage: 25 ?G, UNK
     Dates: start: 20080620
  3. LEVOTHYROXINE [Concomitant]
     Dosage: 25 ?G, UNK
     Dates: start: 20080721
  4. LEVOTHYROXINE [Concomitant]
     Dosage: 25 ?G, UNK
     Dates: start: 20080808

REACTIONS (2)
  - Pelvic venous thrombosis [None]
  - Deep vein thrombosis [None]
